FAERS Safety Report 18001620 (Version 1)
Quarter: 2020Q3

REPORT INFORMATION
  Report Type: Spontaneous
  Country: CA (occurrence: CA)
  Receive Date: 20200709
  Receipt Date: 20200709
  Transmission Date: 20201103
  Serious: Yes (Other)
  Sender: FDA-Public Use
  Company Number: CA-MYLANLABS-2020M1062374

PATIENT
  Age: 15 Year
  Sex: Female

DRUGS (3)
  1. TESTOSTERONE. [Suspect]
     Active Substance: TESTOSTERONE
     Indication: TRANSGENDER HORMONAL THERAPY
     Dosage: 75 MILLIGRAM, QW
     Route: 065
  2. ACETAZOLAMIDE. [Concomitant]
     Active Substance: ACETAZOLAMIDE
     Indication: IDIOPATHIC INTRACRANIAL HYPERTENSION
     Dosage: 1 GRAM, QD
     Route: 065
  3. TOPIRAMATE. [Suspect]
     Active Substance: TOPIRAMATE
     Indication: IDIOPATHIC INTRACRANIAL HYPERTENSION
     Dosage: UNK
     Route: 065

REACTIONS (6)
  - Idiopathic intracranial hypertension [Recovering/Resolving]
  - Drug ineffective for unapproved indication [Unknown]
  - Papilloedema [Recovering/Resolving]
  - Visual field defect [Recovered/Resolved]
  - Hormone level abnormal [Unknown]
  - Off label use [Unknown]
